FAERS Safety Report 12190989 (Version 1)
Quarter: 2016Q1

REPORT INFORMATION
  Report Type: Spontaneous
  Country: US (occurrence: None)
  Receive Date: 20160317
  Receipt Date: 20160317
  Transmission Date: 20160526
  Serious: Yes (Life-Threatening)
  Sender: FDA-Public Use
  Company Number: None

PATIENT
  Age: 68 Year
  Sex: Male
  Weight: 104 kg

DRUGS (1)
  1. ALTEPLASE 100 MG GENETECH [Suspect]
     Active Substance: ALTEPLASE
     Indication: ISCHAEMIC STROKE
     Route: 042
     Dates: start: 20160312, end: 20160312

REACTIONS (3)
  - Angioedema [None]
  - Restlessness [None]
  - Agitation [None]

NARRATIVE: CASE EVENT DATE: 20160312
